FAERS Safety Report 9544151 (Version 1)
Quarter: 2013Q3

REPORT INFORMATION
  Report Type: Spontaneous
  Country: FR (occurrence: FR)
  Receive Date: 20130923
  Receipt Date: 20130923
  Transmission Date: 20140515
  Serious: Yes (Death, Hospitalization)
  Sender: FDA-Public Use
  Company Number: PHHY2013FR105441

PATIENT
  Age: 90 Year
  Sex: Female

DRUGS (10)
  1. AMOXICILLIN SODIUM+POTASSIUM CLAVULANATE SANDOZ [Suspect]
     Indication: PNEUMONIA ASPIRATION
     Dates: start: 20121226, end: 20121228
  2. CIPROFLOXACIN ARROW [Suspect]
     Dosage: 1 DF, QD
     Route: 065
     Dates: start: 20121228, end: 20130103
  3. PIPERACILINA + TAZOBACTAM KABI [Suspect]
     Indication: PNEUMONIA ASPIRATION
     Dosage: 4 G, Q12H
     Route: 042
     Dates: start: 20121228, end: 20121231
  4. IMIPENEM CILASTATINE MYLAN [Suspect]
     Dosage: 15 ML, Q12H
     Route: 042
     Dates: end: 20130105
  5. VALACICLOVIR ARROW [Suspect]
     Dosage: 0.5 DF, QD
     Route: 048
     Dates: start: 20121227
  6. EUPANTOL [Suspect]
     Indication: GASTROOESOPHAGEAL REFLUX DISEASE
     Route: 048
     Dates: start: 20121226
  7. DOLIPRANE [Suspect]
     Route: 048
     Dates: start: 20121226
  8. MIANSERINE ARROW [Suspect]
     Dosage: 1 DF, QD
     Route: 048
     Dates: start: 20121226
  9. SERESTA [Suspect]
     Route: 048
     Dates: start: 20121226
  10. CORTANCYL [Suspect]
     Dosage: 1 DF, QD
     Route: 048
     Dates: start: 20121227

REACTIONS (1)
  - Bicytopenia [Fatal]
